FAERS Safety Report 14301195 (Version 1)
Quarter: 2017Q4

REPORT INFORMATION
  Report Type: Spontaneous
  Country: US (occurrence: US)
  Receive Date: 20171218
  Receipt Date: 20171218
  Transmission Date: 20180321
  Serious: Yes (Disabling)
  Sender: FDA-Public Use
  Company Number: None

PATIENT
  Sex: Female
  Weight: 76.5 kg

DRUGS (10)
  1. REPATHA [Suspect]
     Active Substance: EVOLOCUMAB
     Indication: LOW DENSITY LIPOPROTEIN INCREASED
     Dosage: QUANTITY:1 INJECTION(S);OTHER FREQUENCY:1SHOT EVERY 2 WKS;?
  2. LEVENIR [Concomitant]
  3. FLEXTOUCH PEN [Concomitant]
  4. LEVOTHROXNE [Concomitant]
  5. LISINOPRIL. [Concomitant]
     Active Substance: LISINOPRIL
  6. BABY ASPIRIN [Concomitant]
     Active Substance: ASPIRIN
  7. VITAMIN B12 [Concomitant]
     Active Substance: CYANOCOBALAMIN
  8. METFORMIN [Concomitant]
     Active Substance: METFORMIN HYDROCHLORIDE
  9. GLUSOSAMINE [Concomitant]
  10. CENTRUM MULTIVITAMIN [Concomitant]

REACTIONS (3)
  - Rhinorrhoea [None]
  - Hypersensitivity [None]
  - Cough [None]

NARRATIVE: CASE EVENT DATE: 20171213
